FAERS Safety Report 7932684-5 (Version None)
Quarter: 2011Q4

REPORT INFORMATION
  Report Type: 
  Country: None (occurrence: None)
  Receive Date: 20111122
  Receipt Date: 20111110
  Transmission Date: 20120403
  Serious: Yes (Other)
  Sender: FDA-Public Use
  Company Number: US-JNJFOC-20111007824

PATIENT
  Sex: Female
  Weight: 90.27 kg

DRUGS (1)
  1. TOPAMAX [Suspect]
     Indication: PRODUCT USED FOR UNKNOWN INDICATION
     Route: 048
     Dates: start: 20110806

REACTIONS (3)
  - NEPHROLITHIASIS [None]
  - HEPATIC CYST [None]
  - RENAL CYST [None]
